FAERS Safety Report 9136966 (Version 1)
Quarter: 2013Q1

REPORT INFORMATION
  Report Type: Spontaneous
  Country: US (occurrence: US)
  Receive Date: 20130304
  Receipt Date: 20130304
  Transmission Date: 20140127
  Serious: Yes (Death, Other)
  Sender: FDA-Public Use
  Company Number: US-MPIJNJ-2013-01702

PATIENT
  Age: 61 Year
  Sex: Female

DRUGS (3)
  1. VELCADE [Suspect]
     Indication: PLASMA CELL LEUKAEMIA
  2. LENALIDOMIDE [Suspect]
     Indication: PLASMA CELL LEUKAEMIA
  3. DEXAMETHASONE [Suspect]
     Indication: PLASMA CELL LEUKAEMIA

REACTIONS (3)
  - Cerebral haemorrhage [Fatal]
  - Hypertension [Unknown]
  - Off label use [Unknown]
